FAERS Safety Report 9336515 (Version 1)
Quarter: 2013Q2

REPORT INFORMATION
  Report Type: Spontaneous
  Country: US (occurrence: US)
  Receive Date: 20130607
  Receipt Date: 20130607
  Transmission Date: 20140414
  Serious: Yes (Other)
  Sender: FDA-Public Use
  Company Number: US-SP-2013-06530

PATIENT
  Sex: Male

DRUGS (3)
  1. IMOVAX RABIES [Suspect]
     Indication: IMMUNISATION
     Route: 065
     Dates: start: 20130307, end: 20130307
  2. TETANUS TOXOID [Suspect]
     Indication: IMMUNISATION
     Route: 065
     Dates: start: 20130307, end: 20130307
  3. IMMUNOGLOBULIN HUMAN ANTIRABIES [Suspect]
     Indication: IMMUNISATION
     Route: 065
     Dates: start: 20130307, end: 20130307

REACTIONS (7)
  - Post-traumatic neck syndrome [Not Recovered/Not Resolved]
  - Paralysis [Not Recovered/Not Resolved]
  - Hemiplegia [Not Recovered/Not Resolved]
  - Paragonimiasis [Not Recovered/Not Resolved]
  - Wound infection [Not Recovered/Not Resolved]
  - Increased viscosity of nasal secretion [Not Recovered/Not Resolved]
  - Foaming at mouth [Not Recovered/Not Resolved]
